FAERS Safety Report 6994205-3 (Version None)
Quarter: 2010Q3

REPORT INFORMATION
  Report Type: 
  Country: None (occurrence: None)
  Receive Date: 20100917
  Receipt Date: 20090922
  Transmission Date: 20110219
  Serious: Yes (Other)
  Sender: FDA-Public Use
  Company Number: US-ASTRAZENECA-2009SE14879

PATIENT
  Age: 54 Year
  Sex: Female

DRUGS (3)
  1. SEROQUEL XR [Suspect]
     Route: 048
  2. CELEXA [Suspect]
     Route: 065
  3. ADDERALL 10 [Concomitant]

REACTIONS (1)
  - CONVULSION [None]
